FAERS Safety Report 23346947 (Version 5)
Quarter: 2025Q3

REPORT INFORMATION
  Report Type: Spontaneous
  Country: US (occurrence: US)
  Receive Date: 20231228
  Receipt Date: 20250718
  Transmission Date: 20251021
  Serious: Yes (Other)
  Sender: SANOFI AVENTIS
  Company Number: US-SA-SAC20231223000278

PATIENT
  Age: 50 Year
  Sex: Female
  Weight: 106.5 kg

DRUGS (17)
  1. DUPIXENT [Suspect]
     Active Substance: DUPILUMAB
     Indication: Chronic rhinosinusitis with nasal polyps
     Dosage: 300 MG, QOW
     Route: 058
     Dates: end: 20240308
  2. DUPIXENT [Suspect]
     Active Substance: DUPILUMAB
     Indication: Rhinitis allergic
     Dosage: 300 MG, QOW
     Route: 058
     Dates: end: 202506
  3. MOUNJARO [Suspect]
     Active Substance: TIRZEPATIDE
  4. ONDANSETRON [Concomitant]
     Active Substance: ONDANSETRON
  5. LOSARTAN POTASSIUM AND HYDROCHLOROTHIAZIDE [Concomitant]
     Active Substance: HYDROCHLOROTHIAZIDE\LOSARTAN POTASSIUM
  6. LEVOTHYROXINE [Concomitant]
     Active Substance: LEVOTHYROXINE
  7. ATORVASTATIN [Concomitant]
     Active Substance: ATORVASTATIN
  8. SERTRALINE [Concomitant]
     Active Substance: SERTRALINE HYDROCHLORIDE
  9. AMLODIPINE [Concomitant]
     Active Substance: AMLODIPINE BESYLATE
  10. NAPROXEN [Concomitant]
     Active Substance: NAPROXEN
  11. POTASSIUM CHLORIDE [Concomitant]
     Active Substance: POTASSIUM CHLORIDE
  12. METFORMIN [Concomitant]
     Active Substance: METFORMIN HYDROCHLORIDE
  13. ASPIRIN [Concomitant]
     Active Substance: ASPIRIN
  14. BUDESONIDE [Concomitant]
     Active Substance: BUDESONIDE
  15. LEVOTHYROXINE SODIUM [Concomitant]
     Active Substance: LEVOTHYROXINE SODIUM
  16. BENZONATATE [Concomitant]
     Active Substance: BENZONATATE
  17. CEFUROXIME [Concomitant]
     Active Substance: CEFUROXIME

REACTIONS (9)
  - Diverticulitis [Unknown]
  - Weight decreased [Unknown]
  - Bronchitis [Recovering/Resolving]
  - Rhinorrhoea [Unknown]
  - Nasal polyps [Unknown]
  - Condition aggravated [Unknown]
  - Nasal congestion [Unknown]
  - Product dose omission issue [Unknown]
  - Product use in unapproved indication [Unknown]

NARRATIVE: CASE EVENT DATE: 20240101
